FAERS Safety Report 11881514 (Version 1)
Quarter: 2015Q4

REPORT INFORMATION
  Report Type: Spontaneous
  Country: US (occurrence: US)
  Receive Date: 20151231
  Receipt Date: 20151231
  Transmission Date: 20160305
  Serious: No
  Sender: FDA-Public Use
  Company Number: US-ORION CORPORATION ORION PHARMA-ENTC2015-0097

PATIENT
  Age: 64 Year
  Sex: Female

DRUGS (6)
  1. METOPROLOL [Concomitant]
     Active Substance: METOPROLOL
     Route: 065
  2. ROPINIROLE. [Concomitant]
     Active Substance: ROPINIROLE
     Route: 065
  3. CARBIDOPA, LEVODOPA AND ENTACAPONE TABLETS [Suspect]
     Active Substance: CARBIDOPA\ENTACAPONE\LEVODOPA
     Indication: PARKINSON^S DISEASE
     Dosage: STRENGTH: 200/50/200 MG
     Route: 048
     Dates: start: 2014, end: 201503
  4. CARBIDOPA, LEVODOPA AND ENTACAPONE TABLETS [Suspect]
     Active Substance: CARBIDOPA\ENTACAPONE\LEVODOPA
     Dosage: STRENGTH: 200/50/200 MG
     Route: 048
     Dates: start: 20150314
  5. AMANTADINE [Concomitant]
     Active Substance: AMANTADINE
     Route: 065
  6. DIAZEPAM. [Concomitant]
     Active Substance: DIAZEPAM
     Route: 065

REACTIONS (8)
  - Reaction to drug excipients [Not Recovered/Not Resolved]
  - Product substitution issue [Unknown]
  - Nausea [Not Recovered/Not Resolved]
  - Product quality issue [Unknown]
  - Musculoskeletal stiffness [Recovered/Resolved]
  - Tremor [Not Recovered/Not Resolved]
  - Fatigue [Not Recovered/Not Resolved]
  - Dizziness [Not Recovered/Not Resolved]

NARRATIVE: CASE EVENT DATE: 2014
